FAERS Safety Report 24607191 (Version 2)
Quarter: 2024Q4

REPORT INFORMATION
  Report Type: Spontaneous
  Country: RO (occurrence: RO)
  Receive Date: 20241112
  Receipt Date: 20241227
  Transmission Date: 20250114
  Serious: Yes (Other)
  Sender: ROCHE
  Company Number: RO-ROCHE-10000124516

PATIENT
  Age: 65 Year
  Sex: Female

DRUGS (4)
  1. ATEZOLIZUMAB [Suspect]
     Active Substance: ATEZOLIZUMAB
     Indication: Lung neoplasm
     Route: 065
     Dates: start: 20240324
  2. AMLODIPINE [Concomitant]
     Active Substance: AMLODIPINE BESYLATE
  3. CARBOPLATIN [Concomitant]
     Active Substance: CARBOPLATIN
  4. ETOPOSIDE [Concomitant]
     Active Substance: ETOPOSIDE

REACTIONS (8)
  - Central nervous system lesion [Unknown]
  - Hepatic cytolysis [Unknown]
  - Headache [Unknown]
  - Fatigue [Unknown]
  - Vertigo [Unknown]
  - Fall [Unknown]
  - Neutropenia [Unknown]
  - Myxoedema [Unknown]
